FAERS Safety Report 13148833 (Version 4)
Quarter: 2017Q3

REPORT INFORMATION
  Report Type: Report from Study
  Country: US (occurrence: US)
  Receive Date: 20170124
  Receipt Date: 20170728
  Transmission Date: 20171127
  Serious: No
  Sender: FDA-Public Use
  Company Number: US-AMGEN-USASL2016147253

PATIENT
  Age: 59 Year
  Sex: Female
  Weight: 68.48 kg

DRUGS (10)
  1. PROGESTERONE. [Concomitant]
     Active Substance: PROGESTERONE
     Dosage: 100 MG, (1TAB)QHS
     Dates: start: 20140908
  2. REPATHA [Suspect]
     Active Substance: EVOLOCUMAB
     Indication: BLOOD CHOLESTEROL ABNORMAL
     Dosage: 140 MG, Q2WK
     Route: 058
  3. VIVELLE-DOT [Concomitant]
     Active Substance: ESTRADIOL
     Dosage: UNK(2PATCH TD)
  4. FISH OIL [Concomitant]
     Active Substance: FISH OIL
     Dosage: 1000 MG, TID
     Route: 048
     Dates: start: 20140908
  5. VIVELLE-DOT [Concomitant]
     Active Substance: ESTRADIOL
     Dosage: 0.05 MG, 2 TIMES/WK
     Dates: start: 20140908
  6. VITAMIN B COMPLEX WITH C [Concomitant]
     Active Substance: ASCORBIC ACID\CALCIUM PANTOTHENATE\CYANOCOBALAMIN\NIACINAMIDE\PYRIDOXINE HYDROCHLORIDE\RIBOFLAVIN\THIAMINE MONONITRATE
     Dosage: 1 UNK,(1TAB) UNK
     Route: 048
     Dates: start: 20140908
  7. GLUCOSAMINE [Concomitant]
     Active Substance: GLUCOSAMINE
     Dosage: 500 MG,(1TAB) TID
     Route: 048
     Dates: start: 20140908
  8. LOVASTATIN. [Concomitant]
     Active Substance: LOVASTATIN
  9. MELATONIN [Concomitant]
     Active Substance: MELATONIN
     Dosage: 5 MG, QHS
     Route: 048
     Dates: start: 20140908
  10. L-METHYLFOLATE [Concomitant]
     Active Substance: LEVOMEFOLIC ACID
     Dosage: 15 MG, (1/2 TAB)QD
     Route: 048
     Dates: start: 20160908

REACTIONS (3)
  - Pruritus [Unknown]
  - Pruritus generalised [Recovered/Resolved]
  - Injection site rash [Recovered/Resolved]
